FAERS Safety Report 5170050-9 (Version None)
Quarter: 2006Q4

REPORT INFORMATION
  Report Type: 
  Country: None (occurrence: None)
  Receive Date: 20061212
  Receipt Date: 20061130
  Transmission Date: 20070319
  Serious: Yes (Other)
  Sender: FDA-Public Use
  Company Number: US-ELI_LILLY_AND_COMPANY-US200611005474

PATIENT
  Age: 56 Year
  Sex: Female

DRUGS (5)
  1. ALIMTA [Suspect]
     Indication: MESOTHELIOMA
     Dates: start: 20060601
  2. CISPLATIN [Concomitant]
     Indication: MESOTHELIOMA
  3. DEXAMETHASONE [Concomitant]
     Indication: PROPHYLAXIS
  4. VITAMIN B-12 [Concomitant]
     Indication: VITAMIN SUPPLEMENTATION
  5. FOLIC ACID [Concomitant]
     Indication: VITAMIN SUPPLEMENTATION

REACTIONS (4)
  - ABDOMINAL PAIN [None]
  - DEHYDRATION [None]
  - ILEUS PARALYTIC [None]
  - WEIGHT DECREASED [None]
